FAERS Safety Report 9524279 (Version 1)
Quarter: 2013Q1

REPORT INFORMATION
  Report Type: Spontaneous
  Country: US (occurrence: None)
  Receive Date: 20130305
  Receipt Date: 20130305
  Transmission Date: 20140127
  Serious: Yes (Hospitalization)
  Sender: FDA-Public Use
  Company Number: 16-21880-12020589

PATIENT
  Age: 65 Year
  Sex: Male

DRUGS (4)
  1. REVLIMID [Suspect]
     Indication: PLASMA CELL MYELOMA
     Dosage: 10 MG, 1 IN 1 D, PO
     Route: 048
     Dates: start: 20110208
  2. BLOOD TRANSFUSION (BLOOD AND RELATED PRODUCTS) (UNKNOWN)? [Concomitant]
  3. DECADRON [Concomitant]
  4. VELCADE [Concomitant]

REACTIONS (6)
  - Dehydration [None]
  - Back pain [None]
  - Decreased appetite [None]
  - Asthenia [None]
  - Hypotension [None]
  - Rash morbilliform [None]
